FAERS Safety Report 5247288-5 (Version None)
Quarter: 2007Q1

REPORT INFORMATION
  Report Type: 
  Country: None (occurrence: None)
  Receive Date: 20070227
  Receipt Date: 20070213
  Transmission Date: 20070707
  Serious: Yes (Other)
  Sender: FDA-Public Use
  Company Number: PHEH2007US01280

PATIENT
  Sex: Female

DRUGS (1)
  1. TRILEPTAL [Suspect]
     Indication: BIPOLAR DISORDER
     Dosage: UNK, UNK
     Dates: start: 20060701, end: 20061001

REACTIONS (7)
  - DRUG WITHDRAWAL SYNDROME [None]
  - HYPERSENSITIVITY [None]
  - PAIN [None]
  - RASH [None]
  - SKIN BURNING SENSATION [None]
  - SKIN DISORDER [None]
  - SUICIDAL IDEATION [None]
